FAERS Safety Report 8301654-X (Version None)
Quarter: 2012Q2

REPORT INFORMATION
  Report Type: 
  Country: None (occurrence: None)
  Receive Date: 20120420
  Receipt Date: 20120410
  Transmission Date: 20120825
  Serious: Yes (Hospitalization)
  Sender: FDA-Public Use
  Company Number: KR-ROCHE-1058994

PATIENT
  Sex: Male
  Weight: 53 kg

DRUGS (9)
  1. RAMOSETRON [Concomitant]
     Dates: start: 20120112
  2. HERCEPTIN [Suspect]
     Indication: GASTRIC CANCER
     Route: 042
     Dates: start: 20110112
  3. SODIUM BICARBONATE [Concomitant]
     Dates: start: 20120112
  4. HERCEPTIN [Suspect]
     Route: 042
     Dates: start: 20120319
  5. XELODA [Suspect]
     Route: 048
     Dates: start: 20120319
  6. OXALIPLATIN [Suspect]
     Route: 042
     Dates: start: 20120319
  7. OXALIPLATIN [Suspect]
     Indication: GASTRIC CANCER
     Route: 042
     Dates: start: 20110112
  8. DEXAMETHASONE [Concomitant]
     Dates: start: 20120112
  9. XELODA [Suspect]
     Indication: GASTRIC CANCER
     Route: 048
     Dates: start: 20110112

REACTIONS (1)
  - PNEUMONIA PRIMARY ATYPICAL [None]
